FAERS Safety Report 14079916 (Version 1)
Quarter: 2017Q4

REPORT INFORMATION
  Report Type: Spontaneous
  Country: GB (occurrence: GB)
  Receive Date: 20171012
  Receipt Date: 20171012
  Transmission Date: 20180321
  Serious: Yes (Other)
  Sender: FDA-Public Use
  Company Number: GB-BAYER-2017-194996

PATIENT

DRUGS (1)
  1. CIPROFLOXACIN. [Suspect]
     Active Substance: CIPROFLOXACIN
     Dosage: 750 MG, BID

REACTIONS (20)
  - Hernia [None]
  - Muscle atrophy [None]
  - Limb discomfort [None]
  - Head injury [None]
  - Limb injury [None]
  - Tendon discomfort [None]
  - Joint injury [None]
  - Sleep disorder [None]
  - Alopecia [None]
  - Eye injury [None]
  - Tendon injury [None]
  - Pain [None]
  - Weight decreased [None]
  - Yawning [None]
  - Temperature regulation disorder [None]
  - Asthenia [None]
  - Neck injury [None]
  - Ear injury [None]
  - Paraesthesia [None]
  - Muscle twitching [None]
